FAERS Safety Report 4833340-2 (Version None)
Quarter: 2005Q4

REPORT INFORMATION
  Report Type: 
  Country: None (occurrence: None)
  Receive Date: 20051117
  Receipt Date: 20051103
  Transmission Date: 20060501
  Serious: Yes (Death)
  Sender: FDA-Public Use
  Company Number: 2005151929

PATIENT

DRUGS (2)
  1. SILDENAFIL CITRATE [Suspect]
     Indication: ILL-DEFINED DISORDER
     Dosage: ORAL
     Route: 048
     Dates: end: 20000101
  2. CALCIUM CHANNEL BLOCKERS (CALCIUM CHANNEL BLOCKERS) [Suspect]
     Indication: HYPERTENSION
     Dates: end: 20000101

REACTIONS (1)
  - HYPERTENSION [None]
